FAERS Safety Report 10743112 (Version 1)
Quarter: 2015Q1

REPORT INFORMATION
  Report Type: Spontaneous
  Country: US (occurrence: US)
  Receive Date: 20150127
  Receipt Date: 20150127
  Transmission Date: 20150721
  Serious: Yes (Other)
  Sender: FDA-Public Use
  Company Number: US-BAUSCH-BL-2015-000483

PATIENT
  Sex: Female

DRUGS (2)
  1. PURPOSE DUAL TREATMENT MOISTURE SUNSCREEN SPF 15 [Suspect]
     Active Substance: OCTINOXATE\OCTISALATE\OXYBENZONE
     Indication: PRODUCT USED FOR UNKNOWN INDICATION
     Route: 061
  2. PURPOSE GENTLE CLEANSING BAR [Suspect]
     Active Substance: COSMETICS
     Indication: PRODUCT USED FOR UNKNOWN INDICATION
     Route: 061

REACTIONS (1)
  - Skin cancer [Recovered/Resolved]
